FAERS Safety Report 6640054-5 (Version None)
Quarter: 2010Q1

REPORT INFORMATION
  Report Type: 
  Country: None (occurrence: None)
  Receive Date: 20100318
  Receipt Date: 20100305
  Transmission Date: 20100710
  Serious: Yes (Hospitalization, Disabling)
  Sender: FDA-Public Use
  Company Number: US-ELI_LILLY_AND_COMPANY-US200911005495

PATIENT
  Sex: Male
  Weight: 104.31 kg

DRUGS (19)
  1. ZYPREXA [Suspect]
     Dosage: 1 D/F, UNK
     Dates: start: 20000101
  2. ZYPREXA [Suspect]
     Dosage: 15 MG, DAILY (1/D)
  3. ZYPREXA [Suspect]
     Dosage: 20 MG, EACH EVENING
  4. ZYPREXA [Suspect]
     Dosage: 25 MG, EACH EVENING
  5. ZYPREXA [Suspect]
     Dosage: 7.5 MG, UNK
  6. ZYPREXA [Suspect]
     Dosage: 12.5 MG, UNK
  7. DEPAKOTE [Concomitant]
     Dosage: 250 MG, UNK
     Dates: start: 20000101, end: 20001018
  8. SEROQUEL [Concomitant]
     Dosage: 25 MG, UNK
     Dates: start: 20070101
  9. TEGRETOL [Concomitant]
     Dosage: 200 MG, 2/D
     Dates: start: 20010101
  10. ATENOLOL [Concomitant]
     Dosage: 50 MG, DAILY (1/D)
     Dates: end: 20030804
  11. HYDROCHLORZIDE [Concomitant]
     Dosage: 25 MG, UNK
     Dates: start: 20030804, end: 20030820
  12. LISINOPRIL [Concomitant]
     Dosage: 10 MG, DAILY (1/D)
     Dates: start: 20030801
  13. LISINOPRIL [Concomitant]
     Dosage: 20 MG, UNK
  14. LISINOPRIL [Concomitant]
     Dosage: 30 MG, UNK
  15. ABILIFY [Concomitant]
     Dosage: 10 MG, DAILY (1/D)
     Dates: start: 20041101
  16. RISPERIDONE [Concomitant]
     Dosage: 3 MG, EACH EVENING
  17. LAMICTAL CD [Concomitant]
     Dosage: 25 MG, UNK
  18. TRILEPTAL [Concomitant]
     Dosage: 8 MG, EACH EVENING
  19. COGENTIN [Concomitant]
     Dosage: 0.5 MG, EACH EVENING

REACTIONS (8)
  - BLOOD CHOLESTEROL INCREASED [None]
  - BLOOD TRIGLYCERIDES INCREASED [None]
  - EPISTAXIS [None]
  - METABOLIC DISORDER [None]
  - OBESITY [None]
  - OVERDOSE [None]
  - TYPE 2 DIABETES MELLITUS [None]
  - WEIGHT INCREASED [None]
